FAERS Safety Report 18288850 (Version 2)
Quarter: 2020Q4

REPORT INFORMATION
  Report Type: Spontaneous
  Country: CO (occurrence: CO)
  Receive Date: 20200921
  Receipt Date: 20201105
  Transmission Date: 20210113
  Serious: Yes (Hospitalization, Other)
  Sender: FDA-Public Use
  Company Number: CO-ROCHE-2679440

PATIENT
  Age: 23 Year
  Sex: Male
  Weight: 45 kg

DRUGS (2)
  1. PULMOZYME [Suspect]
     Active Substance: DORNASE ALFA
     Indication: CYSTIC FIBROSIS
     Dosage: DOSE AND FREQUENCY NOT REPORTED
     Route: 048
     Dates: start: 20200424
  2. PULMOZYME [Suspect]
     Active Substance: DORNASE ALFA
     Dosage: ONE AMPOULE EVERY 12 HOURS- CONTRIBUTORY
     Route: 055

REACTIONS (2)
  - Pneumothorax [Not Recovered/Not Resolved]
  - Respiratory arrest [Recovered/Resolved]

NARRATIVE: CASE EVENT DATE: 20200817
